FAERS Safety Report 7707057-0 (Version None)
Quarter: 2011Q3

REPORT INFORMATION
  Report Type: 
  Country: None (occurrence: None)
  Receive Date: 20110824
  Receipt Date: 20110812
  Transmission Date: 20111222
  Serious: Yes (Hospitalization)
  Sender: FDA-Public Use
  Company Number: IT-JNJFOC-20110403554

PATIENT
  Sex: Male
  Weight: 34.8 kg

DRUGS (6)
  1. AZATHIOPRINE [Concomitant]
  2. MUPIROCIN [Concomitant]
  3. REMICADE [Suspect]
     Route: 042
     Dates: start: 20110222
  4. PREDNISONE [Concomitant]
  5. REMICADE [Suspect]
     Indication: CROHN'S DISEASE
     Route: 042
     Dates: start: 20101104
  6. ANTIBIOTIC NOS [Concomitant]

REACTIONS (1)
  - CROHN'S DISEASE [None]
